FAERS Safety Report 18409982 (Version 2)
Quarter: 2020Q4

REPORT INFORMATION
  Report Type: Spontaneous
  Country: US (occurrence: US)
  Receive Date: 20201021
  Receipt Date: 20201203
  Transmission Date: 20210114
  Serious: No
  Sender: FDA-Public Use
  Company Number: US-PFIZER INC-2020398730

PATIENT
  Age: 13 Year
  Sex: Male
  Weight: 38.56 kg

DRUGS (2)
  1. GENOTROPIN [Suspect]
     Active Substance: SOMATROPIN
     Dosage: 1.4 MG, DAILY
     Dates: start: 20180616
  2. GENOTROPIN [Suspect]
     Active Substance: SOMATROPIN
     Indication: GROWTH RETARDATION
     Dosage: 1.9 MG, DAILY

REACTIONS (4)
  - Device breakage [Unknown]
  - Device information output issue [Unknown]
  - Device use issue [Unknown]
  - Drug dose omission by device [Unknown]

NARRATIVE: CASE EVENT DATE: 2020
